FAERS Safety Report 5786001-X (Version None)
Quarter: 2008Q2

REPORT INFORMATION
  Report Type: 
  Country: None (occurrence: None)
  Receive Date: 20080624
  Receipt Date: 20080623
  Transmission Date: 20081010
  Serious: Yes (Death, Hospitalization)
  Sender: FDA-Public Use
  Company Number: PHBS2008IT04891

PATIENT
  Age: 33 Year
  Sex: Female

DRUGS (2)
  1. OXYTOCIN [Suspect]
     Indication: CAESAREAN SECTION
     Dosage: UNK,UNK
     Route: 065
  2. BUPIVACAINE [Suspect]
     Indication: CAESAREAN SECTION
     Dosage: 2.2 ML, ONCE/SINGLE
     Route: 065

REACTIONS (13)
  - ACUTE PULMONARY OEDEMA [None]
  - BLOOD IMMUNOGLOBULIN E INCREASED [None]
  - BRAIN OEDEMA [None]
  - BRONCHOSPASM [None]
  - CARDIAC ARREST [None]
  - CHEMICAL POISONING [None]
  - ENDOTRACHEAL INTUBATION [None]
  - HAEMOGLOBIN DECREASED [None]
  - HYPOTENSION [None]
  - INTRA-ABDOMINAL HAEMORRHAGE [None]
  - PLATELET COUNT DECREASED [None]
  - RESPIRATORY DISTRESS [None]
  - SURGERY [None]
